FAERS Safety Report 22119387 (Version 1)
Quarter: 2023Q1

REPORT INFORMATION
  Report Type: Spontaneous
  Country: US (occurrence: None)
  Receive Date: 20230320
  Receipt Date: 20230320
  Transmission Date: 20230418
  Serious: No
  Sender: FDA-Public Use
  Company Number: None

PATIENT
  Age: 42 Year
  Sex: Male

DRUGS (1)
  1. HUMIRA [Suspect]
     Active Substance: ADALIMUMAB
     Dosage: OTHER FREQUENCY : OTHER;?
     Route: 058
     Dates: start: 202103

REACTIONS (6)
  - Needle issue [None]
  - Device leakage [None]
  - Injection site pain [None]
  - Injection site erythema [None]
  - Injection site mass [None]
  - Device malfunction [None]

NARRATIVE: CASE EVENT DATE: 20230317
